FAERS Safety Report 6369053-8 (Version None)
Quarter: 2009Q3

REPORT INFORMATION
  Report Type: 
  Country: None (occurrence: None)
  Receive Date: 20090922
  Receipt Date: 20090911
  Transmission Date: 20100115
  Serious: Yes (Hospitalization)
  Sender: FDA-Public Use
  Company Number: PHHY2009JP35364

PATIENT
  Sex: Male
  Weight: 72 kg

DRUGS (2)
  1. DIOVAN HCT [Suspect]
     Indication: HYPERTENSION
     Dosage: 1 DF (80/6.25 MG), QD
     Route: 048
     Dates: start: 20090710, end: 20090819
  2. CRESTOR [Concomitant]
     Indication: HYPERLIPIDAEMIA
     Dosage: 2.5 MG, UNK
     Route: 048

REACTIONS (6)
  - ACUTE MYOCARDIAL INFARCTION [None]
  - ARTERIOGRAM CAROTID [None]
  - BLOOD URIC ACID INCREASED [None]
  - CHEST PAIN [None]
  - PERCUTANEOUS CORONARY INTERVENTION [None]
  - STENT PLACEMENT [None]
